FAERS Safety Report 11656484 (Version 2)
Quarter: 2016Q2

REPORT INFORMATION
  Report Type: Spontaneous
  Country: US (occurrence: US)
  Receive Date: 20151023
  Receipt Date: 20160510
  Transmission Date: 20160815
  Serious: No
  Sender: FDA-Public Use
  Company Number: US-MDT-ADR-2015-02011

PATIENT
  Age: 30 Year
  Sex: Male

DRUGS (7)
  1. PROVENTIL [Suspect]
     Active Substance: ALBUTEROL
  2. DUONEB [Suspect]
     Active Substance: ALBUTEROL SULFATE\IPRATROPIUM BROMIDE
     Route: 055
  3. TYLENOL [Suspect]
     Active Substance: ACETAMINOPHEN
  4. REGLAN [Suspect]
     Active Substance: METOCLOPRAMIDE HYDROCHLORIDE
  5. LIORESAL [Suspect]
     Active Substance: BACLOFEN
     Dosage: 59.95MCG/DAY
     Route: 037
  6. VITAMIN D [Suspect]
     Active Substance: CHOLECALCIFEROL
  7. SENOKOT [Suspect]
     Active Substance: SENNOSIDES

REACTIONS (2)
  - Skin disorder [Not Recovered/Not Resolved]
  - Fungal infection [Not Recovered/Not Resolved]
